FAERS Safety Report 25906469 (Version 2)
Quarter: 2025Q4

REPORT INFORMATION
  Report Type: Spontaneous
  Country: US (occurrence: US)
  Receive Date: 20251010
  Receipt Date: 20251028
  Transmission Date: 20260119
  Serious: No
  Sender: ALEMBIC
  Company Number: US-ALEMBIC PHARMACUETICALS LIMITED-2025SCAL001288

PATIENT

DRUGS (2)
  1. BIMATOPROST [Suspect]
     Active Substance: BIMATOPROST
     Indication: Hair colour changes
     Dosage: 1 DROP, QD
     Route: 061
     Dates: start: 20250920
  2. BIMATOPROST [Suspect]
     Active Substance: BIMATOPROST
     Indication: Madarosis

REACTIONS (2)
  - Solar lentigo [Not Recovered/Not Resolved]
  - Pigmentation disorder [Not Recovered/Not Resolved]
